APPROVED DRUG PRODUCT: MONISTAT 3
Active Ingredient: MICONAZOLE NITRATE
Strength: 200MG
Dosage Form/Route: SUPPOSITORY;VAGINAL
Application: N018888 | Product #001 | TE Code: AB
Applicant: MEDTECH PRODUCTS INC
Approved: Aug 15, 1984 | RLD: Yes | RS: Yes | Type: RX